FAERS Safety Report 11722548 (Version 8)
Quarter: 2020Q3

REPORT INFORMATION
  Report Type: Report from Study
  Country: CA (occurrence: CA)
  Receive Date: 20151111
  Receipt Date: 20200731
  Transmission Date: 20201102
  Serious: Yes (Life-Threatening, Hospitalization, Other)
  Sender: FDA-Public Use
  Company Number: PHHY2015CA131821

PATIENT
  Sex: Female

DRUGS (8)
  1. TAFINLAR [Suspect]
     Active Substance: DABRAFENIB MESYLATE
     Indication: METASTATIC MALIGNANT MELANOMA
     Dosage: 300 MG, QD (150 MG, BID)
     Route: 048
     Dates: start: 20150929
  2. MEKINIST [Suspect]
     Active Substance: TRAMETINIB DIMETHYL SULFOXIDE
     Dosage: 4 MG, QD
     Route: 048
  3. MEKINIST [Suspect]
     Active Substance: TRAMETINIB DIMETHYL SULFOXIDE
     Dosage: 02 MG, QD (DAILY)
     Route: 048
     Dates: start: 20151127
  4. ZELBORAF [Concomitant]
     Active Substance: VEMURAFENIB
     Indication: PRODUCT USED FOR UNKNOWN INDICATION
     Dosage: 960 MG, BID
     Route: 065
     Dates: start: 202005, end: 202007
  5. MEKINIST [Suspect]
     Active Substance: TRAMETINIB DIMETHYL SULFOXIDE
     Indication: METASTATIC MALIGNANT MELANOMA
     Dosage: UNK
     Route: 065
     Dates: start: 201510
  6. NIVOLUMAB [Concomitant]
     Active Substance: NIVOLUMAB
     Indication: PRODUCT USED FOR UNKNOWN INDICATION
     Dosage: 480 MG, 94 W
     Route: 065
     Dates: start: 202001, end: 202004
  7. TAFINLAR [Suspect]
     Active Substance: DABRAFENIB MESYLATE
     Dosage: UNK
     Route: 065
     Dates: start: 201510, end: 201703
  8. COTELLIC [Concomitant]
     Active Substance: COBIMETINIB
     Indication: PRODUCT USED FOR UNKNOWN INDICATION
     Dosage: 60 MG, QD
     Route: 065
     Dates: start: 202005, end: 202007

REACTIONS (27)
  - Nasopharyngitis [Unknown]
  - Skin disorder [Unknown]
  - Skin hypertrophy [Unknown]
  - Skin lesion [Unknown]
  - Productive cough [Unknown]
  - Feeling abnormal [Unknown]
  - Sensory disturbance [Unknown]
  - Vomiting [Not Recovered/Not Resolved]
  - Bowel movement irregularity [Unknown]
  - Acne [Unknown]
  - Cough [Unknown]
  - Rash [Unknown]
  - Acrochordon [Unknown]
  - Peripheral swelling [Recovered/Resolved]
  - Fatigue [Unknown]
  - Nausea [Not Recovered/Not Resolved]
  - Blood glucose increased [Unknown]
  - Asthenia [Unknown]
  - Seizure [Unknown]
  - Incorrect dose administered [Unknown]
  - Dizziness [Unknown]
  - Gait disturbance [Unknown]
  - Drug intolerance [Unknown]
  - Hyperaesthesia [Unknown]
  - Hypersensitivity [Unknown]
  - Diarrhoea [Unknown]
  - Swelling [Unknown]
